FAERS Safety Report 6689033-2 (Version None)
Quarter: 2010Q2

REPORT INFORMATION
  Report Type: 
  Country: None (occurrence: None)
  Receive Date: 20100420
  Receipt Date: 20100414
  Transmission Date: 20101027
  Serious: Yes (Death, Hospitalization)
  Sender: FDA-Public Use
  Company Number: PHHY2010US15604

PATIENT
  Sex: Female
  Weight: 79.28 kg

DRUGS (2)
  1. EXJADE [Suspect]
     Indication: MYELODYSPLASTIC SYNDROME
     Dosage: 1625 MG DAILY
     Route: 048
     Dates: start: 20080701
  2. EXJADE [Suspect]
     Indication: TRANSFUSION

REACTIONS (3)
  - CHOLECYSTITIS [None]
  - GALLBLADDER OPERATION [None]
  - SEPSIS [None]
